FAERS Safety Report 8131906-8 (Version None)
Quarter: 2012Q1

REPORT INFORMATION
  Report Type: 
  Country: None (occurrence: None)
  Receive Date: 20120213
  Receipt Date: 20120208
  Transmission Date: 20120608
  Serious: Yes (Other)
  Sender: FDA-Public Use
  Company Number: ES-PFIZER INC-2012034120

PATIENT
  Age: 65 Year
  Sex: Female

DRUGS (3)
  1. LYRICA [Suspect]
     Indication: RENAL PAIN
     Dosage: 75 MG, 1X/DAY
     Dates: start: 20110501
  2. OMEPRAZOLE [Concomitant]
     Dosage: UNK
  3. LEVOTHYROXINE SODIUM [Concomitant]
     Dosage: UNK

REACTIONS (3)
  - EPISTAXIS [None]
  - BLOOD PRESSURE INCREASED [None]
  - DIZZINESS [None]
